FAERS Safety Report 8353569-9 (Version None)
Quarter: 2012Q2

REPORT INFORMATION
  Report Type: 
  Country: None (occurrence: None)
  Receive Date: 20120511
  Receipt Date: 20110616
  Transmission Date: 20120825
  Serious: No
  Sender: FDA-Public Use
  Company Number: US-GLAXOSMITHKLINE-A0931746A

PATIENT
  Age: 74 Year
  Sex: Female

DRUGS (14)
  1. MULTI-VITAMIN [Concomitant]
  2. CALCIUM [Concomitant]
  3. NIASPAN [Concomitant]
  4. ZOLOFT [Concomitant]
  5. LYRICA [Concomitant]
  6. SYNTHROID [Concomitant]
  7. CRESTOR [Concomitant]
  8. VITAMIN D [Concomitant]
  9. ZETIA [Concomitant]
  10. COREG CR [Concomitant]
  11. DIOVAN [Concomitant]
  12. TYKERB [Suspect]
     Indication: BREAST CANCER
     Dosage: 250MG FOUR TIMES PER DAY
     Route: 048
     Dates: start: 20100801, end: 20110301
  13. PLAVIX [Concomitant]
  14. FENOFIBRATE [Concomitant]

REACTIONS (3)
  - BLISTER [None]
  - DIARRHOEA [None]
  - RASH [None]
